FAERS Safety Report 4310281-0 (Version None)
Quarter: 2004Q1

REPORT INFORMATION
  Report Type: 
  Country: None (occurrence: None)
  Receive Date: 20040303
  Receipt Date: 20030708
  Transmission Date: 20041129
  Serious: Yes (Death, Life-Threatening, Hospitalization)
  Sender: FDA-Public Use
  Company Number: DE-BRISTOL-MYERS SQUIBB COMPANY-12320560

PATIENT
  Age: 69 Year
  Sex: Male
  Weight: 64 kg

DRUGS (6)
  1. CARBOPLATIN [Suspect]
     Indication: NON-SMALL CELL LUNG CANCER
     Route: 042
     Dates: start: 20030321, end: 20030321
  2. PACLITAXEL [Suspect]
     Indication: NON-SMALL CELL LUNG CANCER
     Route: 042
     Dates: start: 20030321, end: 20030321
  3. DEXAMETHASONE [Concomitant]
     Indication: PREMEDICATION
     Dates: start: 20030321, end: 20030321
  4. SOSTRIL [Concomitant]
     Indication: PREMEDICATION
     Dosage: DOSAGE = 1 AMP
     Dates: start: 20030321, end: 20030321
  5. TAVEGIL [Concomitant]
     Indication: PREMEDICATION
     Dosage: DOSAGE = 1 AMP
     Dates: start: 20030321, end: 20030321
  6. KEVATRIL [Concomitant]
     Indication: PREMEDICATION
     Dates: start: 20030321, end: 20030321

REACTIONS (7)
  - DIARRHOEA [None]
  - GENERAL PHYSICAL HEALTH DETERIORATION [None]
  - HYPERKALAEMIA [None]
  - LEUKOPENIA [None]
  - NAUSEA [None]
  - RENAL FAILURE [None]
  - VOMITING [None]
